FAERS Safety Report 9110915 (Version 1)
Quarter: 2013Q1

REPORT INFORMATION
  Report Type: Spontaneous
  Country: US (occurrence: US)
  Receive Date: 20130219
  Receipt Date: 20130219
  Transmission Date: 20140127
  Serious: No
  Sender: FDA-Public Use
  Company Number: US-BRISTOL-MYERS SQUIBB COMPANY-16974990

PATIENT
  Age: 64 Year
  Sex: Female
  Weight: 180 kg

DRUGS (8)
  1. ABATACEPT SUBQ INJECTION 125MG/ML [Suspect]
     Indication: RHEUMATOID ARTHRITIS
     Dosage: LAST INJECTION 13SEP2012,1 INFUSION,2 INJECTIONS?LAST INJ 15NV12
     Route: 058
  2. ORENCIA [Suspect]
  3. PREDNISONE [Concomitant]
     Dosage: TABS
  4. AVAPRO TABS 75 MG [Concomitant]
  5. METHYLDOPA [Concomitant]
     Dosage: TABS
  6. DILTIAZEM CD [Concomitant]
     Dosage: CAPS
  7. MULTIVITAMIN [Concomitant]
     Dosage: TAB
  8. VITAMIN D [Concomitant]
     Dosage: TAB- 400

REACTIONS (1)
  - Drug ineffective [Unknown]
